FAERS Safety Report 4400763-5 (Version None)
Quarter: 2004Q3

REPORT INFORMATION
  Report Type: 
  Country: None (occurrence: None)
  Receive Date: 20040907
  Receipt Date: 20030305
  Transmission Date: 20050211
  Serious: Yes (Hospitalization, Other)
  Sender: FDA-Public Use
  Company Number: US-BRISTOL-MYERS SQUIBB COMPANY-12203162

PATIENT
  Age: 55 Year
  Sex: Female
  Weight: 89 kg

DRUGS (3)
  1. COUMADIN [Suspect]
     Indication: CEREBROVASCULAR ACCIDENT
     Dosage: TAKING FOR YEARS
     Route: 048
     Dates: end: 20020801
  2. CAPOTEN [Concomitant]
     Dosage: ^FOR YEARS^
  3. AUGMENTIN '125' [Concomitant]
     Dosage: FOR A ^FEW DAYS^

REACTIONS (2)
  - CEREBROVASCULAR ACCIDENT [None]
  - INTERNATIONAL NORMALISED RATIO ABNORMAL [None]
